FAERS Safety Report 18600316 (Version 1)
Quarter: 2020Q4

REPORT INFORMATION
  Report Type: Spontaneous
  Country: US (occurrence: US)
  Receive Date: 20201210
  Receipt Date: 20201210
  Transmission Date: 20210114
  Serious: Yes (Hospitalization)
  Sender: FDA-Public Use
  Company Number: None

PATIENT
  Age: 56 Year
  Sex: Male
  Weight: 130 kg

DRUGS (1)
  1. DOCETAXEL. [Suspect]
     Active Substance: DOCETAXEL
     Indication: HEAD AND NECK CANCER
     Dosage: ?          OTHER FREQUENCY:WEEKLY;?
     Route: 042
     Dates: start: 20201208

REACTIONS (2)
  - Infusion related reaction [None]
  - Back pain [None]

NARRATIVE: CASE EVENT DATE: 20201208
